FAERS Safety Report 10680123 (Version 2)
Quarter: 2015Q1

REPORT INFORMATION
  Report Type: Spontaneous
  Country: FR (occurrence: FR)
  Receive Date: 20141229
  Receipt Date: 20150115
  Transmission Date: 20150720
  Serious: Yes (Hospitalization)
  Sender: FDA-Public Use
  Company Number: FR-PFIZER INC-2014353513

PATIENT
  Age: 91 Year
  Sex: Female

DRUGS (8)
  1. AMLOR [Suspect]
     Active Substance: AMLODIPINE BESYLATE
     Dosage: 5 MG, DAILY
     Route: 065
  2. CELIPROLOL HCL [Suspect]
     Active Substance: CELIPROLOL
     Dosage: 100 MG, 2X/DAY
     Route: 048
     Dates: end: 201410
  3. FLUDEX [Concomitant]
     Active Substance: INDAPAMIDE
  4. COVERSYL [Concomitant]
     Active Substance: PERINDOPRIL
  5. ZYMAD [Concomitant]
     Active Substance: CHOLECALCIFEROL
     Dosage: 10 000 IU/ML
  6. HEMIGOXINE NATIVELLE [Concomitant]
     Active Substance: DIGOXIN
  7. CELIPROLOL HCL [Suspect]
     Active Substance: CELIPROLOL
     Dosage: 100 MG, EVERY OTHER DAY
     Route: 048
     Dates: end: 201410
  8. PREVISCAN [Concomitant]
     Active Substance: FLUINDIONE

REACTIONS (2)
  - Fall [Recovered/Resolved]
  - Bradycardia [Recovered/Resolved]

NARRATIVE: CASE EVENT DATE: 20141009
